FAERS Safety Report 7417133-8 (Version None)
Quarter: 2011Q2

REPORT INFORMATION
  Report Type: 
  Country: None (occurrence: None)
  Receive Date: 20110415
  Receipt Date: 20110406
  Transmission Date: 20111010
  Serious: Yes (Other)
  Sender: FDA-Public Use
  Company Number: NL-AMGEN-NLDCT2011003511

PATIENT
  Age: 67 Year
  Sex: Male

DRUGS (4)
  1. DARBEPOETIN ALFA [Suspect]
     Indication: PRODUCT USED FOR UNKNOWN INDICATION
     Dosage: 150 A?G, QWK
     Dates: start: 20070816, end: 20071026
  2. DARBEPOETIN ALFA [Suspect]
     Dosage: 150 A?G, QWK
     Dates: start: 20070816, end: 20071026
  3. CISPLATIN [Concomitant]
     Dosage: UNK
     Dates: end: 20071001
  4. CHEMOTHERAPEUTICS NOS [Concomitant]
     Dosage: UNK UNK, Q3WK
     Dates: start: 20070723, end: 20071016

REACTIONS (1)
  - POOR PERIPHERAL CIRCULATION [None]
